FAERS Safety Report 26042215 (Version 1)
Quarter: 2025Q4

REPORT INFORMATION
  Report Type: Spontaneous
  Country: US (occurrence: None)
  Receive Date: 20251113
  Receipt Date: 20251113
  Transmission Date: 20260119
  Serious: Yes (Life-Threatening)
  Sender: FDA-CTU
  Company Number: None

PATIENT
  Age: 80 Year
  Sex: Female

DRUGS (1)
  1. CEFTRIAXONE [Suspect]
     Active Substance: CEFTRIAXONE
     Indication: Urinary tract infection
     Dosage: OTHER FREQUENCY : ONCE;?
     Route: 042

REACTIONS (6)
  - Infusion related reaction [None]
  - Malaise [None]
  - Unresponsive to stimuli [None]
  - Oxygen saturation decreased [None]
  - Pulse absent [None]
  - Anaphylactic reaction [None]

NARRATIVE: CASE EVENT DATE: 20251103
